FAERS Safety Report 5506774-0 (Version None)
Quarter: 2007Q4

REPORT INFORMATION
  Report Type: 
  Country: None (occurrence: None)
  Receive Date: 20071101
  Receipt Date: 20071023
  Transmission Date: 20080405
  Serious: Yes (Other)
  Sender: FDA-Public Use
  Company Number: 2007333658

PATIENT
  Age: 24 Month

DRUGS (1)
  1. PEDIACARE DECONGESTANT (PSEUDOEPHEDRINE) [Suspect]
     Dosage: ORAL
     Route: 048

REACTIONS (2)
  - ABNORMAL BEHAVIOUR [None]
  - ACCIDENTAL EXPOSURE [None]
